FAERS Safety Report 8203765-6 (Version None)
Quarter: 2012Q1

REPORT INFORMATION
  Report Type: 
  Country: None (occurrence: None)
  Receive Date: 20120308
  Receipt Date: 20120229
  Transmission Date: 20120608
  Serious: Yes (Hospitalization, Other)
  Sender: FDA-Public Use
  Company Number: 2011SP005792

PATIENT
  Age: 27 Year
  Sex: Female
  Weight: 68.0396 kg

DRUGS (1)
  1. NUVARING [Suspect]
     Indication: CONTRACEPTION
     Dosage: 1 DF;QM;VAG
     Route: 067
     Dates: start: 20040101, end: 20070301

REACTIONS (31)
  - NEOPLASM MALIGNANT [None]
  - HYPERCOAGULATION [None]
  - TRICUSPID VALVE INCOMPETENCE [None]
  - TREATMENT NONCOMPLIANCE [None]
  - NORMOCHROMIC NORMOCYTIC ANAEMIA [None]
  - NECK PAIN [None]
  - GASTROOESOPHAGEAL REFLUX DISEASE [None]
  - MIGRAINE [None]
  - PULMONARY VALVE INCOMPETENCE [None]
  - ENDOMETRIOSIS [None]
  - RHINITIS ALLERGIC [None]
  - LIPOPROTEIN (A) INCREASED [None]
  - OVARIAN CYST [None]
  - INFECTION [None]
  - ACARODERMATITIS [None]
  - PHOTOSENSITIVITY REACTION [None]
  - RESPIRATORY DISTRESS [None]
  - TENSION HEADACHE [None]
  - MULTIPLE ALLERGIES [None]
  - PELVIC PAIN [None]
  - VULVOVAGINITIS TRICHOMONAL [None]
  - HUMAN PAPILLOMA VIRUS TEST POSITIVE [None]
  - TRANSIENT ISCHAEMIC ATTACK [None]
  - SINUSITIS [None]
  - LOWER RESPIRATORY TRACT INFECTION [None]
  - DRUG HYPERSENSITIVITY [None]
  - MITRAL VALVE INCOMPETENCE [None]
  - POLLAKIURIA [None]
  - SMEAR CERVIX ABNORMAL [None]
  - ACTIVATED PARTIAL THROMBOPLASTIN TIME PROLONGED [None]
  - NEUROPATHY PERIPHERAL [None]
